FAERS Safety Report 26139675 (Version 1)
Quarter: 2025Q4

REPORT INFORMATION
  Report Type: Spontaneous
  Country: JP (occurrence: JP)
  Receive Date: 20251210
  Receipt Date: 20251210
  Transmission Date: 20260117
  Serious: Yes (Other)
  Sender: CHEPLAPHARM
  Company Number: JP-CP_KK-2025JP005487

PATIENT
  Age: 76 Year
  Sex: Male

DRUGS (2)
  1. HYDROXYUREA [Suspect]
     Active Substance: HYDROXYUREA
     Indication: Thrombocytosis
     Dosage: UNK
     Route: 048
  2. OZAGREL [Suspect]
     Active Substance: OZAGREL
     Indication: Lacunar infarction
     Dosage: UNK
     Route: 048

REACTIONS (3)
  - Henoch-Schonlein purpura [Unknown]
  - Shock haemorrhagic [Unknown]
  - Duodenal ulcer haemorrhage [Unknown]
